FAERS Safety Report 10221721 (Version 1)
Quarter: 2014Q2

REPORT INFORMATION
  Report Type: Spontaneous
  Country: FR (occurrence: JP)
  Receive Date: 20140606
  Receipt Date: 20140606
  Transmission Date: 20141212
  Serious: Yes (Life-Threatening, Other)
  Sender: FDA-Public Use
  Company Number: JP-FRI-1000067911

PATIENT
  Age: 50 Year
  Sex: Female

DRUGS (2)
  1. MILNACIPRAN [Suspect]
     Indication: DEPRESSION
     Dosage: 75 MG
     Route: 048
  2. ZYPREXA [Suspect]
     Indication: DEPRESSION
     Dosage: 10 MG
     Route: 048

REACTIONS (2)
  - Suicide attempt [Recovering/Resolving]
  - Dizziness [Recovering/Resolving]
